FAERS Safety Report 11177331 (Version 3)
Quarter: 2015Q3

REPORT INFORMATION
  Report Type: Report from Study
  Country: PL (occurrence: PL)
  Receive Date: 20150610
  Receipt Date: 20150826
  Transmission Date: 20151125
  Serious: Yes (Disabling)
  Sender: FDA-Public Use
  Company Number: PL-BIOGENIDEC-2015BI075355

PATIENT
  Age: 52 Year
  Sex: Male
  Weight: 69 kg

DRUGS (1)
  1. BIIB017 [Suspect]
     Active Substance: PEGINTERFERON BETA-1A
     Indication: MULTIPLE SCLEROSIS
     Dosage: DOSE UNIT:125
     Route: 058
     Dates: start: 20120608

REACTIONS (1)
  - Limb traumatic amputation [Recovered/Resolved]

NARRATIVE: CASE EVENT DATE: 20150408
